FAERS Safety Report 21254071 (Version 2)
Quarter: 2022Q4

REPORT INFORMATION
  Report Type: Spontaneous
  Country: US (occurrence: US)
  Receive Date: 20220825
  Receipt Date: 20221101
  Transmission Date: 20230112
  Serious: No
  Sender: FDA-Public Use
  Company Number: US-PFIZER INC-202201090177

PATIENT
  Age: 74 Year
  Sex: Male
  Weight: 78.02 kg

DRUGS (1)
  1. PAXLOVID [Suspect]
     Active Substance: NIRMATRELVIR\RITONAVIR
     Indication: COVID-19 treatment
     Dosage: (PF-07321332 300 MG]/[RITONAVIR 100 MG), 2X/DAY
     Route: 048
     Dates: start: 20220809, end: 20220813

REACTIONS (1)
  - Diarrhoea [Recovered/Resolved]

NARRATIVE: CASE EVENT DATE: 20220813
